FAERS Safety Report 5115004-3 (Version None)
Quarter: 2006Q3

REPORT INFORMATION
  Report Type: 
  Country: None (occurrence: None)
  Receive Date: 20060922
  Receipt Date: 20060908
  Transmission Date: 20061208
  Serious: Yes (Death)
  Sender: FDA-Public Use
  Company Number: CLOF-10318

PATIENT
  Age: 15 Year
  Sex: Male

DRUGS (1)
  1. CLOFARABINE [Suspect]
     Indication: ACUTE MYELOID LEUKAEMIA
     Dosage: 52 MG/M2 QD X 5 IV
     Route: 042
     Dates: start: 20060902, end: 20060905

REACTIONS (5)
  - CARDIAC ARREST [None]
  - CONDITION AGGRAVATED [None]
  - HYPOTENSION [None]
  - NEUTROPENIA [None]
  - SEPSIS [None]
